FAERS Safety Report 19113127 (Version 2)
Quarter: 2021Q2

REPORT INFORMATION
  Report Type: Spontaneous
  Country: IT (occurrence: IT)
  Receive Date: 20210408
  Receipt Date: 20210412
  Transmission Date: 20210717
  Serious: Yes (Life-Threatening)
  Sender: FDA-Public Use
  Company Number: IT-MYLANLABS-2021M1020775

PATIENT
  Age: 68 Year
  Sex: Female
  Weight: 55 kg

DRUGS (10)
  1. OXALIPLATIN. [Suspect]
     Active Substance: OXALIPLATIN
     Indication: PANCREATIC CARCINOMA
     Dosage: 85 MILLIGRAM/SQ. METER, CYCLE
     Route: 042
     Dates: start: 20200831, end: 20201028
  2. CREON [Concomitant]
     Active Substance: PANCRELIPASE AMYLASE\PANCRELIPASE LIPASE\PANCRELIPASE PROTEASE
     Dosage: UNK
  3. LEVOPRAID                          /00314301/ [Concomitant]
     Active Substance: SULPIRIDE
     Dosage: UNK
  4. CALCIO FOLINATO [Concomitant]
     Dosage: UNK
  5. ONDANSETRON HYDROCHLORIDE. [Concomitant]
     Active Substance: ONDANSETRON HYDROCHLORIDE
     Dosage: UNK
  6. PANTOPRAZOLE [Concomitant]
     Active Substance: PANTOPRAZOLE
     Dosage: UNK
  7. ATROPINA SOLFATO [Concomitant]
     Dosage: UNK
  8. FLUORO?URACILE [Concomitant]
     Active Substance: FLUOROURACIL
     Dosage: UNK
  9. SOLDESAM [Concomitant]
     Active Substance: DEXAMETHASONE
     Dosage: UNK
  10. IRINOTECAN HYDROCHLORIDE TRIHYDRATE/01280202/ [Concomitant]
     Active Substance: IRINOTECAN HYDROCHLORIDE
     Dosage: UNK

REACTIONS (5)
  - Dysarthria [Recovered/Resolved]
  - Medication error [Unknown]
  - Tongue oedema [Recovered/Resolved]
  - Muscle rigidity [Recovered/Resolved]
  - Dyspnoea [Recovered/Resolved]

NARRATIVE: CASE EVENT DATE: 20201028
